FAERS Safety Report 21560625 (Version 6)
Quarter: 2022Q4

REPORT INFORMATION
  Report Type: Spontaneous
  Country: CA (occurrence: CA)
  Receive Date: 20221107
  Receipt Date: 20221220
  Transmission Date: 20230113
  Serious: No
  Sender: FDA-Public Use
  Company Number: CA-PFIZER INC-202201151263

PATIENT
  Age: 50 Year
  Sex: Male
  Weight: 127.3 kg

DRUGS (12)
  1. ABRILADA [Suspect]
     Active Substance: ADALIMUMAB-AFZB
     Indication: Hidradenitis
     Dosage: 40 MG, WEEKLY (40MG EVERY WEEK   )
     Route: 058
     Dates: start: 20220802, end: 20220802
  2. ABRILADA [Suspect]
     Active Substance: ADALIMUMAB-AFZB
     Dosage: 40 MG, EVERY WEEK
     Route: 058
     Dates: start: 20220802, end: 2022
  3. ABRILADA [Suspect]
     Active Substance: ADALIMUMAB-AFZB
     Dosage: 80 MG, WEEKLY (FORMAT NOT AVAILABLE)
     Route: 058
     Dates: start: 2022, end: 2022
  4. ABRILADA [Suspect]
     Active Substance: ADALIMUMAB-AFZB
     Dosage: 80 MG, WEEKLY
     Route: 058
     Dates: start: 202209, end: 202209
  5. ABRILADA [Suspect]
     Active Substance: ADALIMUMAB-AFZB
     Dosage: 40 MG, WEEKLY (80MG AS PER PHYSICIANS PRESCRIPTION)
     Route: 058
     Dates: start: 20221012
  6. ABRILADA [Suspect]
     Active Substance: ADALIMUMAB-AFZB
     Dosage: 80 MG, WEEKLY
     Route: 058
     Dates: start: 20221018
  7. APO DOXYCYCLINE [Concomitant]
     Dosage: 100 MG, 2X/DAY
     Route: 065
  8. APO DOXYCYCLINE [Concomitant]
     Dosage: UNK
  9. APO DOXYCYCLINE [Concomitant]
     Dosage: 100 MG, 2X/DAY
     Route: 065
  10. METFORMIN [Concomitant]
     Active Substance: METFORMIN HYDROCHLORIDE
     Dosage: UNK
  11. METFORMIN [Concomitant]
     Active Substance: METFORMIN HYDROCHLORIDE
     Dosage: 500 MG, 3X/DAY
     Route: 065
  12. MORPHINE [Concomitant]
     Active Substance: MORPHINE
     Dosage: 1 DF, AS NEEDED, DOSAGE UNKNWON
     Route: 065

REACTIONS (20)
  - Drug ineffective [Unknown]
  - Nodule [Not Recovered/Not Resolved]
  - Off label use [Unknown]
  - Inappropriate schedule of product administration [Unknown]
  - Product dose omission issue [Unknown]
  - Intentional product misuse [Unknown]
  - Infection [Unknown]
  - Pain [Unknown]
  - Oedema [Unknown]
  - Drug dose omission by device [Unknown]
  - Accidental exposure to product [Unknown]
  - Exposure via skin contact [Unknown]
  - Device leakage [Unknown]
  - Device breakage [Unknown]
  - Needle issue [Unknown]
  - Device issue [Unknown]
  - Device difficult to use [Unknown]
  - Device mechanical issue [Unknown]
  - Injection site pain [Unknown]
  - Injection site haemorrhage [Unknown]

NARRATIVE: CASE EVENT DATE: 20220101
